FAERS Safety Report 5078916-5 (Version None)
Quarter: 2006Q3

REPORT INFORMATION
  Report Type: 
  Country: None (occurrence: None)
  Receive Date: 20060814
  Receipt Date: 20060802
  Transmission Date: 20061208
  Serious: Yes (Hospitalization)
  Sender: FDA-Public Use
  Company Number: FI-AMGEN-UK188726

PATIENT
  Sex: Female

DRUGS (7)
  1. ARANESP [Suspect]
     Indication: RENAL FAILURE CHRONIC
     Route: 058
     Dates: start: 20051026, end: 20060331
  2. DIOVAN [Concomitant]
     Route: 048
  3. PLENDIL [Concomitant]
     Route: 048
  4. THYROXIN [Concomitant]
     Route: 048
  5. CALCICHEW [Concomitant]
     Route: 048
  6. COLECALCIFEROL [Concomitant]
     Route: 048
     Dates: start: 20050813
  7. PENTETRAZOL [Concomitant]
     Route: 048

REACTIONS (1)
  - VAGINAL CANCER [None]
